FAERS Safety Report 5577210-3 (Version None)
Quarter: 2007Q4

REPORT INFORMATION
  Report Type: 
  Country: None (occurrence: None)
  Receive Date: 20071130
  Receipt Date: 20070726
  Transmission Date: 20080405
  Serious: No
  Sender: FDA-Public Use
  Company Number: US200707006532

PATIENT
  Age: 45 Year
  Sex: Female
  Weight: 141.9 kg

DRUGS (20)
  1. BYETTA [Suspect]
     Indication: TYPE 2 DIABETES MELLITUS
     Dosage: 5 UG, 2/D, SUBCUTANEOUS, 10 UG, 2/D, SUBCUTANEOUS
     Route: 058
     Dates: start: 20070301, end: 20070401
  2. BYETTA [Suspect]
     Indication: TYPE 2 DIABETES MELLITUS
     Dosage: 5 UG, 2/D, SUBCUTANEOUS, 10 UG, 2/D, SUBCUTANEOUS
     Route: 058
     Dates: start: 20070401
  3. LANTUS [Concomitant]
  4. HUMULIN R [Concomitant]
  5. GLIMEPIRIDE [Concomitant]
  6. ACTOS [Concomitant]
  7. METFORMIN HCL [Concomitant]
  8. ATENOLOL [Concomitant]
  9. ALBUTEROL [Concomitant]
  10. SOMA [Concomitant]
  11. CYMBALTA [Concomitant]
  12. FLONASE [Concomitant]
  13. GEODON [Concomitant]
  14. HYDROCHLOROTHIAZIDE [Concomitant]
  15. LUNESTA [Concomitant]
  16. LEXAPRO [Concomitant]
  17. NEXIUM [Concomitant]
  18. NORCO [Concomitant]
  19. PROVIGIL [Concomitant]
  20. ZYRTEC [Concomitant]

REACTIONS (4)
  - DECREASED APPETITE [None]
  - INJECTION SITE BRUISING [None]
  - THYROID DISORDER [None]
  - WEIGHT DECREASED [None]
